FAERS Safety Report 7798482-0 (Version None)
Quarter: 2011Q4

REPORT INFORMATION
  Report Type: 
  Country: None (occurrence: None)
  Receive Date: 20111005
  Receipt Date: 20111003
  Transmission Date: 20120403
  Serious: Yes (Other)
  Sender: FDA-Public Use
  Company Number: US-PFIZER INC-2011058680

PATIENT
  Sex: Female
  Weight: 50.794 kg

DRUGS (3)
  1. PRIMIDONE [Concomitant]
     Indication: CONVULSION
     Dosage: UNK
     Route: 048
  2. PHENYTOIN [Suspect]
     Indication: CONVULSION
     Dosage: UNK
  3. DILANTIN-125 [Suspect]
     Indication: CONVULSION
     Dosage: 100 MG, UNK

REACTIONS (1)
  - NO ADVERSE EVENT [None]
